FAERS Safety Report 7046487-X (Version None)
Quarter: 2010Q4

REPORT INFORMATION
  Report Type: 
  Country: None (occurrence: None)
  Receive Date: 20101014
  Receipt Date: 20101004
  Transmission Date: 20110411
  Serious: Yes (Other)
  Sender: FDA-Public Use
  Company Number: PHHY2009DE35658

PATIENT
  Sex: Female
  Weight: 70 kg

DRUGS (3)
  1. ACLASTA [Suspect]
     Dosage: 5 MG
     Dates: start: 20090722
  2. ACLASTA [Suspect]
     Dosage: 5 MG
     Route: 042
     Dates: start: 20100930
  3. REWODINA [Concomitant]
     Indication: OSTEOARTHRITIS
     Dosage: 150 MG, UNK
     Route: 048

REACTIONS (3)
  - CHILLS [None]
  - NAUSEA [None]
  - URINARY RETENTION [None]
